FAERS Safety Report 4531188-X (Version None)
Quarter: 2004Q4

REPORT INFORMATION
  Report Type: 
  Country: None (occurrence: None)
  Receive Date: 20041216
  Receipt Date: 20041206
  Transmission Date: 20050328
  Serious: Yes (Other)
  Sender: FDA-Public Use
  Company Number: 200413331GDS

PATIENT
  Age: 61 Year
  Sex: Male

DRUGS (2)
  1. CIPROFLOXACIN [Suspect]
     Indication: BACTERIAL INFECTION
     Dosage: 600 MG, TOTAL DAILY, INTRAVENOUS
     Route: 042
     Dates: start: 20020510, end: 20020515
  2. KEFZOL [Concomitant]

REACTIONS (1)
  - ENTERITIS [None]
